FAERS Safety Report 25662776 (Version 1)
Quarter: 2025Q3

REPORT INFORMATION
  Report Type: Spontaneous
  Country: EU (occurrence: None)
  Receive Date: 20250811
  Receipt Date: 20250811
  Transmission Date: 20251020
  Serious: Yes (Hospitalization)
  Sender: ENCUBE ETHICALS
  Company Number: EU-Encube-002116

PATIENT
  Age: 69 Year
  Sex: Male

DRUGS (3)
  1. TACROLIMUS [Suspect]
     Active Substance: TACROLIMUS
     Indication: Prophylaxis against transplant rejection
     Route: 048
  2. MYCOPHENOLATE MOFETIL [Concomitant]
     Active Substance: MYCOPHENOLATE MOFETIL
     Indication: Prophylaxis against transplant rejection
  3. METHYLPREDNISOLONE [Concomitant]
     Active Substance: METHYLPREDNISOLONE
     Indication: Prophylaxis against transplant rejection

REACTIONS (6)
  - Dilated cardiomyopathy [Recovering/Resolving]
  - Off label use [Unknown]
  - Acute kidney injury [Unknown]
  - Angina pectoris [Unknown]
  - Cardiac failure acute [Recovering/Resolving]
  - Cardiotoxicity [Recovering/Resolving]
